FAERS Safety Report 5808045-1 (Version None)
Quarter: 2008Q3

REPORT INFORMATION
  Report Type: 
  Country: None (occurrence: None)
  Receive Date: 20080711
  Receipt Date: 20080630
  Transmission Date: 20090109
  Serious: Yes (Hospitalization)
  Sender: FDA-Public Use
  Company Number: JP-PFIZER INC-2008055073

PATIENT

DRUGS (1)
  1. VFEND [Suspect]
     Dosage: DAILY DOSE:400MG
     Route: 048
     Dates: start: 20080627, end: 20080628

REACTIONS (1)
  - LUNG DISORDER [None]
